FAERS Safety Report 18014095 (Version 1)
Quarter: 2020Q3

REPORT INFORMATION
  Report Type: Report from Study
  Country: IN (occurrence: IN)
  Receive Date: 20200713
  Receipt Date: 20200713
  Transmission Date: 20201103
  Serious: Yes (Hospitalization, Other)
  Sender: FDA-Public Use
  Company Number: NVSC2020IN031462

PATIENT
  Age: 57 Year
  Sex: Female
  Weight: 83 kg

DRUGS (4)
  1. GLYCOMET GP [Concomitant]
     Indication: DIABETES MELLITUS
     Dosage: 1 DF, BID
     Route: 048
  2. ROSEDAY [Concomitant]
     Indication: PRODUCT USED FOR UNKNOWN INDICATION
     Dosage: UNK
     Route: 048
  3. GALVUS MET [Suspect]
     Active Substance: METFORMIN HYDROCHLORIDE\VILDAGLIPTIN
     Indication: DIABETES MELLITUS
     Dosage: 1 DF, BID(50/500 OT)
     Route: 065
  4. IDENTI CAL [Concomitant]
     Indication: PRODUCT USED FOR UNKNOWN INDICATION
     Dosage: UNK
     Route: 048

REACTIONS (12)
  - Spinal compression fracture [Unknown]
  - Gait disturbance [Unknown]
  - Muscle disorder [Unknown]
  - Glycosylated haemoglobin increased [Unknown]
  - Breast pain [Unknown]
  - Fatigue [Unknown]
  - Arthralgia [Unknown]
  - Nerve injury [Unknown]
  - Hypertension [Unknown]
  - Nephropathy [Unknown]
  - Rash [Unknown]
  - Blood glucose fluctuation [Unknown]

NARRATIVE: CASE EVENT DATE: 1998
